FAERS Safety Report 7458683-8 (Version None)
Quarter: 2011Q2

REPORT INFORMATION
  Report Type: 
  Country: None (occurrence: None)
  Receive Date: 20110504
  Receipt Date: 20110420
  Transmission Date: 20111010
  Serious: Yes (Hospitalization)
  Sender: FDA-Public Use
  Company Number: US-JNJFOC-20100406861

PATIENT
  Sex: Female
  Weight: 27.8 kg

DRUGS (5)
  1. MESALAMINE [Concomitant]
     Route: 048
  2. MULTI-VITAMINS [Concomitant]
  3. IRON [Concomitant]
  4. INFLIXIMAB [Suspect]
     Indication: CROHN'S DISEASE
     Route: 042
  5. FOLIC ACID [Concomitant]

REACTIONS (3)
  - CROHN'S DISEASE [None]
  - RECTAL ABSCESS [None]
  - VULVAL ABSCESS [None]
